FAERS Safety Report 9801231 (Version 1)
Quarter: 2014Q1

REPORT INFORMATION
  Report Type: Spontaneous
  Country: US (occurrence: US)
  Receive Date: 20140107
  Receipt Date: 20140107
  Transmission Date: 20141002
  Serious: No
  Sender: FDA-Public Use
  Company Number: US-009507513-1401USA001822

PATIENT
  Age: 28 Year
  Sex: Female

DRUGS (3)
  1. CLARITIN-D-24 [Suspect]
     Indication: RESPIRATORY TRACT CONGESTION
     Dosage: UNK, BID
     Route: 048
     Dates: start: 20131119
  2. CLARITIN-D-24 [Suspect]
     Indication: HOUSE DUST ALLERGY
  3. CLARITIN-D-24 [Suspect]
     Indication: ALLERGY TO ANIMAL

REACTIONS (3)
  - Overdose [Unknown]
  - Inappropriate schedule of drug administration [Unknown]
  - Drug ineffective [Unknown]
